FAERS Safety Report 9713759 (Version 1)
Quarter: 2013Q4

REPORT INFORMATION
  Report Type: Spontaneous
  Country: US (occurrence: None)
  Receive Date: 20131122
  Receipt Date: 20131122
  Transmission Date: 20140711
  Serious: Yes (Other)
  Sender: FDA-Public Use
  Company Number: IMP_06896_2013

PATIENT
  Age: 24 Year
  Sex: Female
  Weight: 27.4 kg

DRUGS (1)
  1. DIPYRIDAMOLE\LYSINE ACETYLSALICYLATE [Suspect]
     Indication: PROPHYLAXIS
     Dosage: ONCE ORAL
     Route: 048
     Dates: start: 20130912, end: 20130912

REACTIONS (5)
  - Abortion spontaneous [None]
  - Maternal exposure during pregnancy [None]
  - Urinary sediment present [None]
  - Bacterial test positive [None]
  - Condition aggravated [None]
